FAERS Safety Report 26193939 (Version 1)
Quarter: 2025Q4

REPORT INFORMATION
  Report Type: Spontaneous
  Country: JP (occurrence: JP)
  Receive Date: 20251224
  Receipt Date: 20251224
  Transmission Date: 20260117
  Serious: Yes (Hospitalization)
  Sender: PFIZER
  Company Number: JP-PFIZER INC-PV202500147550

PATIENT
  Age: 9 Decade
  Sex: Female

DRUGS (2)
  1. METHOTREXATE SODIUM [Suspect]
     Active Substance: METHOTREXATE SODIUM
     Indication: Rheumatoid arthritis
     Dosage: 4 MG, WEEKLY
     Route: 048
  2. METHOTREXATE SODIUM [Suspect]
     Active Substance: METHOTREXATE SODIUM
     Dosage: MORE THAN 20 MG PER WEEK
     Route: 048

REACTIONS (5)
  - Overdose [Unknown]
  - Febrile neutropenia [Recovering/Resolving]
  - Bacteraemia [Unknown]
  - Oral disorder [Recovering/Resolving]
  - Mucosal disorder [Recovering/Resolving]
